FAERS Safety Report 9006172 (Version 1)
Quarter: 2013Q1

REPORT INFORMATION
  Report Type: Spontaneous
  Country: US (occurrence: US)
  Receive Date: 20130110
  Receipt Date: 20130110
  Transmission Date: 20140127
  Serious: Yes (Hospitalization, Other)
  Sender: FDA-Public Use
  Company Number: US-009507513-1301USA002994

PATIENT
  Sex: Male

DRUGS (2)
  1. MIRALAX [Suspect]
     Indication: CONSTIPATION
     Dosage: 4.25 G, UNKNOWN
     Route: 048
  2. MIRALAX [Suspect]
     Dosage: 25.5 UNK, UNK

REACTIONS (3)
  - Surgery [Unknown]
  - Underdose [Unknown]
  - Overdose [Unknown]
